FAERS Safety Report 9104854 (Version 2)
Quarter: 2014Q1

REPORT INFORMATION
  Report Type: Spontaneous
  Country: FR (occurrence: FR)
  Receive Date: 20130219
  Receipt Date: 20140124
  Transmission Date: 20141002
  Serious: Yes (Death, Hospitalization)
  Sender: FDA-Public Use
  Company Number: FR-ROCHE-1192352

PATIENT
  Age: 65 Year
  Sex: Male

DRUGS (1)
  1. XELODA [Suspect]
     Indication: RECTAL ADENOCARCINOMA
     Dosage: 500 MG: 3 TABLETS
     Route: 048
     Dates: start: 20121102, end: 20121123

REACTIONS (2)
  - Colitis ischaemic [Fatal]
  - Shock [Fatal]
